FAERS Safety Report 7972735-5 (Version None)
Quarter: 2011Q4

REPORT INFORMATION
  Report Type: 
  Country: None (occurrence: None)
  Receive Date: 20111213
  Receipt Date: 20111206
  Transmission Date: 20120403
  Serious: Yes (Other)
  Sender: FDA-Public Use
  Company Number: US-PFIZER INC-2010034377

PATIENT
  Sex: Male

DRUGS (17)
  1. VANCOMYCIN [Concomitant]
     Dosage: UNK
  2. NITROGLYCERIN [Concomitant]
     Dosage: UNK
     Route: 060
  3. GLYBURIDE [Concomitant]
     Dosage: UNK
  4. DILANTIN [Suspect]
     Indication: CONVULSION
     Dosage: 300 MG, 1X/DAY
     Route: 048
  5. NORVASC [Concomitant]
     Dosage: UNK
  6. INSULIN [Concomitant]
     Dosage: UNK
  7. ZOCOR [Concomitant]
     Dosage: UNK
  8. ROCEPHIN [Concomitant]
     Dosage: UNK
  9. OMEGA-3 TRIGLYCERIDES [Concomitant]
     Dosage: UNK
  10. ACETAMINOPHEN [Concomitant]
     Dosage: UNK
  11. PRILOSEC [Concomitant]
     Dosage: UNK
  12. DILANTIN [Suspect]
     Dosage: 100 MG, 3X/DAY
     Route: 042
  13. TOPAMAX [Concomitant]
     Dosage: UNK
  14. DILANTIN [Suspect]
     Dosage: 200 MG, UNK
     Route: 048
     Dates: start: 20081224
  15. ASPIRIN [Concomitant]
     Dosage: UNK
  16. LACTULOSE [Concomitant]
     Dosage: UNK
  17. PROMETHAZINE [Concomitant]
     Dosage: UNK

REACTIONS (1)
  - STEVENS-JOHNSON SYNDROME [None]
